FAERS Safety Report 11811680 (Version 3)
Quarter: 2015Q4

REPORT INFORMATION
  Report Type: Spontaneous
  Country: BR (occurrence: BR)
  Receive Date: 20151208
  Receipt Date: 20151230
  Transmission Date: 20160305
  Serious: Yes (Death, Other)
  Sender: FDA-Public Use
  Company Number: BR-ALEXION PHARMACEUTICALS INC-A201504846

PATIENT
  Age: 37 Year
  Sex: Female

DRUGS (1)
  1. SOLIRIS [Suspect]
     Active Substance: ECULIZUMAB
     Indication: HAEMOLYTIC URAEMIC SYNDROME
     Dosage: 900 MG, QW
     Route: 042
     Dates: start: 20151118

REACTIONS (9)
  - Immunosuppression [Fatal]
  - Thrombocytopenia [Fatal]
  - Infection [Fatal]
  - Blood pressure abnormal [Fatal]
  - Respiratory failure [Fatal]
  - Haemoglobin decreased [Fatal]
  - Hypovolaemic shock [Unknown]
  - Asthenia [Fatal]
  - Haemorrhage [Fatal]

NARRATIVE: CASE EVENT DATE: 20151127
